FAERS Safety Report 10120722 (Version 1)
Quarter: 2014Q2

REPORT INFORMATION
  Report Type: Spontaneous
  Country: US (occurrence: US)
  Receive Date: 20140425
  Receipt Date: 20140425
  Transmission Date: 20141212
  Serious: Yes (Other)
  Sender: FDA-Public Use
  Company Number: CHPA2014US005524

PATIENT
  Age: 67 Year
  Sex: Male

DRUGS (5)
  1. EXCEDRIN PM [Suspect]
     Indication: SLEEP DISORDER
     Dosage: 2 DF, PRN
     Route: 048
  2. EXCEDRIN PM [Suspect]
     Indication: OFF LABEL USE
  3. EXCEDRIN EXTRA STRENGTH [Suspect]
     Indication: MIGRAINE
     Dosage: 2 DF, PRN
     Route: 048
  4. EXCEDRIN EXTRA STRENGTH [Suspect]
     Indication: OFF LABEL USE
     Dosage: 10 DF, UNK
     Route: 048
  5. EXCEDRIN EXTRA STRENGTH [Suspect]
     Dosage: 1 DF, UNK
     Route: 048

REACTIONS (4)
  - Rebound effect [Unknown]
  - Incorrect dose administered [Unknown]
  - Expired product administered [Unknown]
  - Therapeutic response changed [Unknown]
